FAERS Safety Report 12473146 (Version 1)
Quarter: 2016Q2

REPORT INFORMATION
  Report Type: Report from Study
  Country: NL (occurrence: NL)
  Receive Date: 20160616
  Receipt Date: 20160616
  Transmission Date: 20160815
  Serious: Yes (Death)
  Sender: FDA-Public Use
  Company Number: NL-ABBVIE-16P-114-1652230-00

PATIENT
  Age: 81 Year
  Sex: Male
  Weight: 66 kg

DRUGS (1)
  1. LUPRON DEPOT [Suspect]
     Active Substance: LEUPROLIDE ACETATE
     Indication: PROSTATE CANCER
     Route: 050
     Dates: start: 2010, end: 20160119

REACTIONS (1)
  - Death [Fatal]

NARRATIVE: CASE EVENT DATE: 20160606
